FAERS Safety Report 14914215 (Version 1)
Quarter: 2018Q2

REPORT INFORMATION
  Report Type: Spontaneous
  Country: TR (occurrence: TR)
  Receive Date: 20180518
  Receipt Date: 20180518
  Transmission Date: 20180711
  Serious: Yes (Hospitalization)
  Sender: FDA-Public Use
  Company Number: PHHY2017TR202044

PATIENT
  Age: 32 Year
  Sex: Male

DRUGS (1)
  1. VIGAMOX [Suspect]
     Active Substance: MOXIFLOXACIN HYDROCHLORIDE
     Indication: PRODUCT USED FOR UNKNOWN INDICATION
     Dosage: UNK UNK, Q3H (FOR ABOUT 1 WEEK)
     Route: 065

REACTIONS (7)
  - Eye pain [Recovering/Resolving]
  - Purulent discharge [Recovering/Resolving]
  - Corneal neovascularisation [Recovering/Resolving]
  - Keratitis fungal [Recovering/Resolving]
  - Vision blurred [Recovering/Resolving]
  - Photophobia [Recovering/Resolving]
  - Conjunctival hyperaemia [Recovering/Resolving]
